FAERS Safety Report 4868676-2 (Version None)
Quarter: 2005Q4

REPORT INFORMATION
  Report Type: 
  Country: None (occurrence: None)
  Receive Date: 20051223
  Receipt Date: 20051215
  Transmission Date: 20060501
  Serious: Yes (Congenital Anomaly)
  Sender: FDA-Public Use
  Company Number: 2005166977

PATIENT
  Sex: Female

DRUGS (2)
  1. VIRACEPT [Suspect]
     Indication: HIV TEST POSITIVE
     Dosage: 2 TABLETS (UNKNOWN, ORAL
     Route: 048
  2. COMBIVIR [Suspect]
     Indication: HIV TEST POSITIVE
     Dosage: 600/300 MG (2 IN 1 D), ORAL
     Route: 048

REACTIONS (7)
  - ARNOLD-CHIARI MALFORMATION [None]
  - ATRIAL SEPTAL DEFECT [None]
  - DRUG EXPOSURE DURING PREGNANCY [None]
  - MENINGOCELE [None]
  - MULTIPLE CONGENITAL ABNORMALITIES [None]
  - PULMONARY ARTERY STENOSIS CONGENITAL [None]
  - VENTRICULAR SEPTAL DEFECT [None]
